FAERS Safety Report 8353932-6 (Version None)
Quarter: 2012Q2

REPORT INFORMATION
  Report Type: 
  Country: None (occurrence: None)
  Receive Date: 20120509
  Receipt Date: 20120430
  Transmission Date: 20120825
  Serious: Yes (Hospitalization, Other)
  Sender: FDA-Public Use
  Company Number: US-1191350

PATIENT
  Age: 47 Year
  Sex: Male
  Weight: 81.6475 kg

DRUGS (8)
  1. PROMETHAZINE [Concomitant]
  2. NEXIUM [Concomitant]
  3. PREVACID [Concomitant]
  4. PERCOCET [Concomitant]
  5. TOBRAMYCIN AND DEXAMETHASONE [Suspect]
     Indication: CONJUNCTIVAL ABRASION
     Dosage: 1 GTT TID OD OPHTHALMIC
     Route: 047
     Dates: start: 20120316
  6. OXYCODONE HCL AND ACETAMINOPHEN [Concomitant]
  7. PROZAC [Concomitant]
  8. LITHIUM CARBONATE [Concomitant]

REACTIONS (10)
  - EYE IRRITATION [None]
  - PNEUMONIA [None]
  - WITHDRAWAL SYNDROME [None]
  - PRODUCT CONTAMINATION [None]
  - DRUG HYPERSENSITIVITY [None]
  - EYE SWELLING [None]
  - EXPIRED DRUG ADMINISTERED [None]
  - FALL [None]
  - TONGUE BITING [None]
  - CONVULSION [None]
